APPROVED DRUG PRODUCT: PREDNISONE
Active Ingredient: PREDNISONE
Strength: 5MG/5ML
Dosage Form/Route: SOLUTION;ORAL
Application: A089726 | Product #001
Applicant: XTTRIUM LABORATORIES INC
Approved: Aug 2, 1988 | RLD: No | RS: No | Type: DISCN